FAERS Safety Report 19802233 (Version 1)
Quarter: 2021Q3

REPORT INFORMATION
  Report Type: Spontaneous
  Country: NL (occurrence: NL)
  Receive Date: 20210908
  Receipt Date: 20210908
  Transmission Date: 20211014
  Serious: Yes (Other)
  Sender: FDA-Public Use
  Company Number: NL-BAUSCH-BL-2021-029568

PATIENT
  Age: 46 Year
  Sex: Male
  Weight: 70 kg

DRUGS (4)
  1. BUDESONIDE. [Concomitant]
     Active Substance: BUDESONIDE
     Indication: PRODUCT USED FOR UNKNOWN INDICATION
  2. CELLCEPT [Interacting]
     Active Substance: MYCOPHENOLATE MOFETIL\MYCOPHENOLATE MOFETIL HYDROCHLORIDE
     Indication: PRODUCT USED FOR UNKNOWN INDICATION
     Route: 065
  3. PREDNISOLONE. [Suspect]
     Active Substance: PREDNISOLONE
     Indication: PRODUCT USED FOR UNKNOWN INDICATION
     Route: 065
  4. BOSWELLIA SERRATA [Interacting]
     Active Substance: DIETARY SUPPLEMENT\HERBALS\INDIAN FRANKINCENSE
     Indication: ARTHROPATHY
     Dosage: 1X A DAY
     Route: 065
     Dates: start: 202103, end: 20210601

REACTIONS (1)
  - Drug interaction [Recovering/Resolving]

NARRATIVE: CASE EVENT DATE: 20210601
